FAERS Safety Report 5091771-2 (Version None)
Quarter: 2006Q3

REPORT INFORMATION
  Report Type: 
  Country: None (occurrence: None)
  Receive Date: 20060829
  Receipt Date: 20060516
  Transmission Date: 20061208
  Serious: No
  Sender: FDA-Public Use
  Company Number: US-BRISTOL-MYERS SQUIBB COMPANY-13378757

PATIENT
  Age: 44 Year
  Sex: Male
  Weight: 107 kg

DRUGS (3)
  1. ERBITUX [Suspect]
     Indication: COLON CANCER
     Dates: start: 20060504
  2. ABILIFY [Concomitant]
  3. IRINOTECAN HCL [Concomitant]

REACTIONS (1)
  - RASH PUSTULAR [None]
